FAERS Safety Report 24160211 (Version 1)
Quarter: 2024Q3

REPORT INFORMATION
  Report Type: Report from Study
  Country: US (occurrence: US)
  Receive Date: 20240801
  Receipt Date: 20240801
  Transmission Date: 20241017
  Serious: Yes (Other)
  Sender: ROCHE
  Company Number: US-ROCHE-10000033398

PATIENT
  Age: 49 Year
  Sex: Female
  Weight: 64.41 kg

DRUGS (1)
  1. OCREVUS [Suspect]
     Active Substance: OCRELIZUMAB
     Indication: Relapsing-remitting multiple sclerosis
     Route: 042

REACTIONS (17)
  - Syncope [Not Recovered/Not Resolved]
  - Deficiency anaemia [Not Recovered/Not Resolved]
  - Glucose tolerance impaired [Not Recovered/Not Resolved]
  - Vulvovaginal candidiasis [Not Recovered/Not Resolved]
  - Dermatitis atopic [Not Recovered/Not Resolved]
  - Urinary tract infection [Not Recovered/Not Resolved]
  - Furuncle [Not Recovered/Not Resolved]
  - Fatigue [Recovering/Resolving]
  - Contusion [Not Recovered/Not Resolved]
  - Fall [Unknown]
  - Temperature intolerance [Not Recovered/Not Resolved]
  - Migraine [Recovered/Resolved]
  - Magnetic resonance imaging head abnormal [Not Recovered/Not Resolved]
  - Nerve injury [Not Recovered/Not Resolved]
  - Stress [Recovered/Resolved]
  - Hyperhidrosis [Unknown]
  - Thinking abnormal [Unknown]

NARRATIVE: CASE EVENT DATE: 20211001
